FAERS Safety Report 21053731 (Version 1)
Quarter: 2022Q3

REPORT INFORMATION
  Report Type: Spontaneous
  Country: US (occurrence: None)
  Receive Date: 20220707
  Receipt Date: 20220707
  Transmission Date: 20221027
  Serious: Yes (Death)
  Sender: FDA-Public Use
  Company Number: None

PATIENT
  Age: 67 Year
  Sex: Female

DRUGS (1)
  1. PROMACTA [Suspect]
     Active Substance: ELTROMBOPAG OLAMINE
     Indication: Thrombocytopenia
     Dosage: 75MG QD ORAL?
     Route: 048
     Dates: start: 20220517, end: 20220610

REACTIONS (4)
  - Pleural effusion [None]
  - Septic shock [None]
  - Ileus [None]
  - Acute respiratory failure [None]

NARRATIVE: CASE EVENT DATE: 20220619
